FAERS Safety Report 8235338-3 (Version None)
Quarter: 2012Q1

REPORT INFORMATION
  Report Type: 
  Country: None (occurrence: None)
  Receive Date: 20120326
  Receipt Date: 20120314
  Transmission Date: 20120608
  Serious: Yes (Other)
  Sender: FDA-Public Use
  Company Number: US-ELI_LILLY_AND_COMPANY-US201203005615

PATIENT
  Sex: Male

DRUGS (12)
  1. CYMBALTA [Suspect]
     Indication: DIABETIC NEUROPATHY
  2. HUMALOG [Suspect]
     Indication: TYPE 2 DIABETES MELLITUS
     Dosage: 70 U, TID
     Dates: start: 20110101
  3. HUMALOG [Suspect]
     Dosage: 30 U, PRN
     Dates: start: 20110101
  4. METFORMIN HCL [Concomitant]
     Dosage: UNK, UNKNOWN
  5. HUMALOG MIX 50/50 [Suspect]
     Indication: TYPE 2 DIABETES MELLITUS
     Dosage: 60 U, TID
     Dates: start: 20120201, end: 20120313
  6. HUMALOG MIX 50/50 [Suspect]
     Dosage: 60 U, TID
     Dates: start: 20120201, end: 20120313
  7. HUMALOG MIX 50/50 [Suspect]
     Dosage: 30 U, OTHER
     Dates: start: 20120201, end: 20120313
  8. HUMALOG [Suspect]
     Dosage: 70 U, TID
     Dates: start: 20110101
  9. LANTUS [Concomitant]
     Dosage: 30 U, UNKNOWN
  10. HUMALOG [Suspect]
     Dosage: 30 U, PRN
     Dates: start: 20110101
  11. HUMALOG MIX 50/50 [Suspect]
     Dosage: 30 U, OTHER
     Dates: start: 20120201, end: 20120313
  12. GLYBURIDE [Concomitant]
     Dosage: UNK, UNKNOWN

REACTIONS (19)
  - INCOHERENT [None]
  - PALPITATIONS [None]
  - PAIN IN JAW [None]
  - DYSPNOEA [None]
  - BLOOD GLUCOSE DECREASED [None]
  - CARDIAC DISORDER [None]
  - BLOOD GLUCOSE INCREASED [None]
  - THINKING ABNORMAL [None]
  - ARTHRITIS [None]
  - HYPERHIDROSIS [None]
  - WEIGHT INCREASED [None]
  - NEUROPATHY PERIPHERAL [None]
  - FIBROMYALGIA [None]
  - FATIGUE [None]
  - FEELING COLD [None]
  - RETINOPATHY [None]
  - FALL [None]
  - SOMNOLENCE [None]
  - FEELING ABNORMAL [None]
